FAERS Safety Report 11673057 (Version 1)
Quarter: 2015Q4

REPORT INFORMATION
  Report Type: Spontaneous
  Country: US (occurrence: US)
  Receive Date: 20151027
  Receipt Date: 20151027
  Transmission Date: 20160304
  Serious: No
  Sender: FDA-Public Use
  Company Number: US-ELI_LILLY_AND_COMPANY-US201005002429

PATIENT
  Age: 75 Year
  Sex: Female

DRUGS (1)
  1. FORTEO [Suspect]
     Active Substance: TERIPARATIDE
     Indication: OSTEOPOROSIS
     Dosage: 20 UG, DAILY (1/D)
     Dates: start: 20090617

REACTIONS (10)
  - Spinal cord injury [Unknown]
  - Pain in extremity [Unknown]
  - Bone pain [Unknown]
  - Cataract [Recovering/Resolving]
  - Visual acuity reduced [Unknown]
  - Muscle spasms [Unknown]
  - Balance disorder [Unknown]
  - Spinal column injury [Unknown]
  - Fall [Recovered/Resolved]
  - Arthralgia [Recovered/Resolved]

NARRATIVE: CASE EVENT DATE: 20100429
